APPROVED DRUG PRODUCT: PAROXETINE HYDROCHLORIDE
Active Ingredient: PAROXETINE HYDROCHLORIDE
Strength: EQ 40MG BASE
Dosage Form/Route: TABLET;ORAL
Application: A078902 | Product #004 | TE Code: AB
Applicant: MYLAN PHARMACEUTICALS INC
Approved: Mar 13, 2008 | RLD: No | RS: No | Type: RX